FAERS Safety Report 14223598 (Version 2)
Quarter: 2017Q4

REPORT INFORMATION
  Report Type: Report from Study
  Country: GB (occurrence: GB)
  Receive Date: 20171124
  Receipt Date: 20171207
  Transmission Date: 20180321
  Serious: Yes (Other)
  Sender: FDA-Public Use
  Company Number: PHHY2017GB172455

PATIENT
  Sex: Female

DRUGS (1)
  1. COSENTYX [Suspect]
     Active Substance: SECUKINUMAB
     Indication: PSORIATIC ARTHROPATHY
     Dosage: 150 MG, QW (LOADING DOSES) (WEEKLY FOR WEEKS 0, 1, 2 AND 3 AND MONTHLY FROM WEEK 4)
     Route: 058
     Dates: start: 201705

REACTIONS (2)
  - Lower respiratory tract infection [Recovered/Resolved]
  - Hypersensitivity [Unknown]
